FAERS Safety Report 5448486-8 (Version None)
Quarter: 2007Q3

REPORT INFORMATION
  Report Type: 
  Country: None (occurrence: None)
  Receive Date: 20070911
  Receipt Date: 20070829
  Transmission Date: 20080115
  Serious: Yes (Death, Other)
  Sender: FDA-Public Use
  Company Number: US-ELI_LILLY_AND_COMPANY-US200708006540

PATIENT
  Age: 90 Year
  Sex: Female

DRUGS (3)
  1. FORTEO [Suspect]
     Dates: start: 20051001
  2. EVISTA [Suspect]
  3. NAMENDA [Concomitant]
     Indication: MEMORY IMPAIRMENT

REACTIONS (3)
  - FALL [None]
  - MYOCARDIAL INFARCTION [None]
  - SKIN LACERATION [None]
